FAERS Safety Report 19832088 (Version 1)
Quarter: 2021Q3

REPORT INFORMATION
  Report Type: Spontaneous
  Country: SI (occurrence: SI)
  Receive Date: 20210915
  Receipt Date: 20210915
  Transmission Date: 20211014
  Serious: Yes (Hospitalization)
  Sender: FDA-Public Use
  Company Number: SI-ROCHE-2907805

PATIENT
  Age: 83 Year
  Sex: Female

DRUGS (2)
  1. TECENTRIQ [Suspect]
     Active Substance: ATEZOLIZUMAB
     Indication: HEPATOCELLULAR CARCINOMA
     Route: 041
     Dates: start: 202001
  2. AVASTIN [Suspect]
     Active Substance: BEVACIZUMAB
     Indication: HEPATOCELLULAR CARCINOMA
     Dosage: TEMPORARY SUSPENDED AT THE TIME OF THE BLEEDING
     Route: 042
     Dates: start: 202001

REACTIONS (7)
  - Cough [Unknown]
  - Diarrhoea haemorrhagic [Unknown]
  - Pneumonitis [Unknown]
  - Productive cough [Unknown]
  - Stomatitis [Unknown]
  - Skin ulcer haemorrhage [Unknown]
  - Ecchymosis [Unknown]

NARRATIVE: CASE EVENT DATE: 202106
